FAERS Safety Report 20319050 (Version 1)
Quarter: 2022Q1

REPORT INFORMATION
  Report Type: Spontaneous
  Country: US (occurrence: None)
  Receive Date: 20220110
  Receipt Date: 20220110
  Transmission Date: 20220424
  Serious: No
  Sender: FDA-Public Use
  Company Number: None

PATIENT
  Age: 58 Year
  Sex: Male
  Weight: 92.7 kg

DRUGS (1)
  1. GABAPENTIN [Suspect]
     Active Substance: GABAPENTIN
     Indication: Neuralgia
     Dosage: FREQUENCY : AT BEDTIME;?
     Route: 048
     Dates: start: 20211119, end: 20211202

REACTIONS (4)
  - Suicidal ideation [None]
  - Mental disorder [None]
  - Bipolar disorder [None]
  - Therapy cessation [None]

NARRATIVE: CASE EVENT DATE: 20211122
